FAERS Safety Report 10205540 (Version 1)
Quarter: 2014Q2

REPORT INFORMATION
  Report Type: Spontaneous
  Country: US (occurrence: US)
  Receive Date: 20140529
  Receipt Date: 20140529
  Transmission Date: 20141212
  Serious: No
  Sender: FDA-Public Use
  Company Number: US-009507513-1405USA010473

PATIENT
  Age: 67 Year
  Sex: Male

DRUGS (2)
  1. EMEND [Suspect]
     Indication: PROPHYLAXIS OF NAUSEA AND VOMITING
     Dosage: 150 MG, UNK
     Route: 042
     Dates: start: 20140519, end: 20140519
  2. DECADRON [Concomitant]
     Dosage: UNK

REACTIONS (1)
  - Cough [Recovered/Resolved]
